FAERS Safety Report 9257553 (Version 1)
Quarter: 2013Q2

REPORT INFORMATION
  Report Type: Other
  Country: FR (occurrence: FR)
  Receive Date: 20130426
  Receipt Date: 20130426
  Transmission Date: 20140414
  Serious: Yes (Life-Threatening, Hospitalization)
  Sender: FDA-Public Use
  Company Number: FR-MILLENNIUM PHARMACEUTICALS, INC.-2013-02941

PATIENT
  Sex: 0

DRUGS (5)
  1. VELCADE [Suspect]
     Indication: PLASMA CELL MYELOMA
     Dosage: 2.4 MG, CYCLIC
     Route: 058
     Dates: start: 20130322, end: 20130401
  2. BACTRIM [Concomitant]
     Indication: PLASMA CELL MYELOMA
  3. DEXAMETHASONE [Concomitant]
     Dosage: UNK
     Dates: start: 20130316
  4. ORACILLINE                         /00001801/ [Concomitant]
  5. ZELITREX                           /01269701/ [Concomitant]

REACTIONS (3)
  - Myoclonus [Not Recovered/Not Resolved]
  - Thrombocytopenia [Not Recovered/Not Resolved]
  - Pneumococcal infection [Unknown]
